FAERS Safety Report 25402589 (Version 1)
Quarter: 2025Q2

REPORT INFORMATION
  Report Type: Report from Study
  Country: DE (occurrence: DE)
  Receive Date: 20250605
  Receipt Date: 20250605
  Transmission Date: 20250716
  Serious: Yes (Life-Threatening, Hospitalization)
  Sender: REGENERON
  Company Number: DE-SA-SAC20231009000202

PATIENT
  Age: 85 Year
  Sex: Female

DRUGS (16)
  1. CEMIPLIMAB [Suspect]
     Active Substance: CEMIPLIMAB
     Indication: Non-small cell lung cancer
     Route: 065
     Dates: start: 20221213, end: 20221213
  2. CEMIPLIMAB [Suspect]
     Active Substance: CEMIPLIMAB
     Route: 065
     Dates: start: 20230109, end: 20230109
  3. CEMIPLIMAB [Suspect]
     Active Substance: CEMIPLIMAB
     Route: 065
     Dates: start: 20230203, end: 20230203
  4. CEMIPLIMAB [Suspect]
     Active Substance: CEMIPLIMAB
     Route: 065
     Dates: start: 20230224, end: 20230224
  5. CEMIPLIMAB [Suspect]
     Active Substance: CEMIPLIMAB
     Route: 065
     Dates: start: 20230317, end: 20230317
  6. CEMIPLIMAB [Suspect]
     Active Substance: CEMIPLIMAB
     Route: 065
     Dates: start: 20230417, end: 20230417
  7. CEMIPLIMAB [Suspect]
     Active Substance: CEMIPLIMAB
     Route: 065
     Dates: start: 20230508, end: 20230508
  8. CEMIPLIMAB [Suspect]
     Active Substance: CEMIPLIMAB
     Route: 065
     Dates: start: 20230531, end: 20230531
  9. CEMIPLIMAB [Suspect]
     Active Substance: CEMIPLIMAB
     Route: 065
     Dates: start: 20230627, end: 20230627
  10. CEMIPLIMAB [Suspect]
     Active Substance: CEMIPLIMAB
     Route: 065
     Dates: start: 20230718, end: 20230727
  11. RAMIPRIL [Concomitant]
     Active Substance: RAMIPRIL
     Indication: Hypertension
     Route: 048
     Dates: start: 201501
  12. PANTOPRAZOLE [Concomitant]
     Active Substance: PANTOPRAZOLE
     Indication: Gastritis
     Route: 048
     Dates: start: 2010
  13. PANCRELIPASE [Concomitant]
     Active Substance: PANCRELIPASE
     Indication: Pancreatitis
     Route: 048
     Dates: start: 2020
  14. ASPIRIN [Concomitant]
     Active Substance: ASPIRIN
     Indication: Coronary artery disease
     Route: 048
     Dates: start: 201501
  15. NEBIVOLOL [Concomitant]
     Active Substance: NEBIVOLOL
     Indication: Hypertension
     Route: 048
     Dates: start: 201501
  16. AMLODIPINE [Concomitant]
     Active Substance: AMLODIPINE BESYLATE
     Indication: Hypertension
     Route: 048
     Dates: start: 202301

REACTIONS (1)
  - Colitis [Recovered/Resolved]

NARRATIVE: CASE EVENT DATE: 20230828
